FAERS Safety Report 24987422 (Version 2)
Quarter: 2025Q1

REPORT INFORMATION
  Report Type: Spontaneous
  Country: FR (occurrence: FR)
  Receive Date: 20250219
  Receipt Date: 20250220
  Transmission Date: 20250409
  Serious: Yes (Other)
  Sender: B BRAUN
  Company Number: FR-B.Braun Medical Inc.-2171436

PATIENT
  Age: 38 Year
  Sex: Female

DRUGS (4)
  1. ACETAMINOPHEN [Suspect]
     Active Substance: ACETAMINOPHEN
     Indication: Pain
     Dates: start: 20200319, end: 20200319
  2. CLOROTEKAL [Suspect]
     Active Substance: CHLOROPROCAINE HYDROCHLORIDE
  3. DEXAMETHASONE [Suspect]
     Active Substance: DEXAMETHASONE
  4. NEFOPAM [Suspect]
     Active Substance: NEFOPAM

REACTIONS (1)
  - Dissociative disorder [Recovered/Resolved]
